FAERS Safety Report 6249997-8 (Version None)
Quarter: 2009Q2

REPORT INFORMATION
  Report Type: 
  Country: None (occurrence: None)
  Receive Date: 20090625
  Receipt Date: 20090612
  Transmission Date: 20091009
  Serious: Yes (Life-Threatening, Hospitalization)
  Sender: FDA-Public Use
  Company Number: 302872

PATIENT
  Age: 72 Year
  Sex: Male

DRUGS (12)
  1. CARBOPLATIN [Suspect]
     Dosage: FREQUENCY: 4 / 1 CYCLICAL (UNKNOWN)
     Dates: start: 20060201
  2. GEMCITABINE [Suspect]
     Dosage: FREQUENCY: 4 / 1 CYCLICAL (UNKNOWN)
     Dates: start: 20060201
  3. AMOXICILLIN [Suspect]
     Dosage: 500 MG FREQUENCY: 3 / 1 DAYS (UNKNOWN)
     Route: 048
  4. OMEPRAZOLE [Suspect]
     Dosage: 20 MG (UNKNOWN)
     Route: 048
     Dates: start: 20060601
  5. SIMVASTATIN [Suspect]
     Indication: BLOOD CHOLESTEROL INCREASED
     Dosage: 80MG (UKNOWN)
     Route: 048
  6. ASPIRIN [Concomitant]
  7. ATENOLOL [Concomitant]
  8. CHLORDIAZEPOXIDE [Concomitant]
  9. CIPROFLOXACIN [Concomitant]
  10. CLARITHROMYCIN [Concomitant]
  11. CORACTEN [Concomitant]
  12. GRANISETRON HCL [Concomitant]

REACTIONS (2)
  - RENAL FAILURE ACUTE [None]
  - RHABDOMYOLYSIS [None]
